FAERS Safety Report 11539385 (Version 1)
Quarter: 2015Q3

REPORT INFORMATION
  Report Type: Spontaneous
  Country: DE (occurrence: DE)
  Receive Date: 20150923
  Receipt Date: 20150923
  Transmission Date: 20151125
  Serious: Yes (Other)
  Sender: FDA-Public Use
  Company Number: DE-SUN PHARMACEUTICAL INDUSTRIES LTD-2015RR-103536

PATIENT

DRUGS (1)
  1. CLARITHROMYCIN. [Suspect]
     Active Substance: CLARITHROMYCIN
     Indication: SINUSITIS
     Dosage: 500 MG, UNK
     Route: 065

REACTIONS (5)
  - Dysgeusia [Unknown]
  - Palpitations [Unknown]
  - Circulatory collapse [Unknown]
  - Pyrexia [Unknown]
  - Panic attack [Unknown]
